FAERS Safety Report 4543131-8 (Version None)
Quarter: 2004Q4

REPORT INFORMATION
  Report Type: 
  Country: None (occurrence: None)
  Receive Date: 20041229
  Receipt Date: 20041222
  Transmission Date: 20050328
  Serious: Yes (Hospitalization)
  Sender: FDA-Public Use
  Company Number: TCI2004A04696

PATIENT
  Age: 60 Year
  Sex: Female

DRUGS (2)
  1. ACTOS [Suspect]
     Indication: DIABETES MELLITUS
     Dosage: 30 MG (30 MG 1 D)
     Route: 048
     Dates: start: 20041218, end: 20041221
  2. NOVOLIN N [Suspect]
     Dosage: INJECTION

REACTIONS (1)
  - CONVULSION [None]
